FAERS Safety Report 8414837-5 (Version None)
Quarter: 2012Q2

REPORT INFORMATION
  Report Type: 
  Country: None (occurrence: None)
  Receive Date: 20120606
  Receipt Date: 20120529
  Transmission Date: 20120825
  Serious: No
  Sender: FDA-Public Use
  Company Number: US-BIOGENIDEC-2012BI018776

PATIENT
  Age: 43 Year
  Sex: Female

DRUGS (2)
  1. AVONEX [Suspect]
     Indication: MULTIPLE SCLEROSIS
     Route: 030
     Dates: start: 20110801
  2. AVONEX [Suspect]
     Route: 030
     Dates: start: 20110729

REACTIONS (3)
  - DIPLOPIA [None]
  - VISION BLURRED [None]
  - NECK PAIN [None]
